FAERS Safety Report 4839433-8 (Version None)
Quarter: 2005Q4

REPORT INFORMATION
  Report Type: 
  Country: None (occurrence: None)
  Receive Date: 20051129
  Receipt Date: 20050407
  Transmission Date: 20060501
  Serious: Yes (Hospitalization, Disabling)
  Sender: FDA-Public Use
  Company Number: US-MERCK-0504USA01159

PATIENT
  Age: 46 Year
  Sex: Male
  Weight: 139 kg

DRUGS (5)
  1. VIOXX [Suspect]
     Indication: ARTHRALGIA
     Route: 048
     Dates: start: 20010601, end: 20040930
  2. VIOXX [Suspect]
     Route: 048
     Dates: end: 20040930
  3. ACTOS [Concomitant]
     Indication: DIABETES MELLITUS NON-INSULIN-DEPENDENT
     Route: 048
  4. TRICOR [Concomitant]
     Indication: HYPERCHOLESTEROLAEMIA
     Route: 048
  5. GLUCOVANCE [Concomitant]
     Indication: DIABETES MELLITUS NON-INSULIN-DEPENDENT
     Route: 048

REACTIONS (13)
  - ANGINA UNSTABLE [None]
  - ANXIETY DISORDER [None]
  - ARTHROPATHY [None]
  - CARDIAC FLUTTER [None]
  - CARDIOMEGALY [None]
  - CORONARY ARTERY DISEASE [None]
  - EMOTIONAL DISTRESS [None]
  - HYPERHOMOCYSTEINAEMIA [None]
  - INSOMNIA [None]
  - JOINT SWELLING [None]
  - PAIN [None]
  - PERIARTHRITIS [None]
  - PULMONARY CONGESTION [None]
